FAERS Safety Report 14542071 (Version 1)
Quarter: 2018Q1

REPORT INFORMATION
  Report Type: Spontaneous
  Country: US (occurrence: US)
  Receive Date: 20180216
  Receipt Date: 20180216
  Transmission Date: 20180509
  Serious: Yes (Hospitalization)
  Sender: FDA-Public Use
  Company Number: US-OTSUKA-DJ20125146

PATIENT
  Age: 63 Year
  Sex: Female
  Weight: 94.78 kg

DRUGS (12)
  1. METHADONE [Suspect]
     Active Substance: METHADONE HYDROCHLORIDE
     Indication: BACK DISORDER
     Dosage: 10 MG, UNK
     Route: 065
  2. LYRICA [Suspect]
     Active Substance: PREGABALIN
     Indication: FIBROMYALGIA
     Dosage: 100 MG, UNK
     Route: 048
     Dates: start: 2011
  3. TAMSULOSIN [Suspect]
     Active Substance: TAMSULOSIN
     Indication: BLADDER OBSTRUCTION
     Dosage: 0.4 MG, UNK
     Route: 048
  4. ATORVASTATIN [Interacting]
     Active Substance: ATORVASTATIN
     Indication: BLOOD CHOLESTEROL INCREASED
     Dosage: 80 MG, QD
     Route: 048
  5. BISACODYL. [Suspect]
     Active Substance: BISACODYL
     Indication: IRRITABLE BOWEL SYNDROME
     Dosage: 5 MG, UNK
     Route: 065
  6. ASPIRIN. [Suspect]
     Active Substance: ASPIRIN
     Indication: HYPERTENSION
     Dosage: 81 MG, UNK
     Route: 065
  7. ALLEGRA [Suspect]
     Active Substance: FEXOFENADINE HYDROCHLORIDE
     Indication: HYPERSENSITIVITY
     Dosage: UNK
     Route: 065
  8. OSTEO BI-FLEX [Suspect]
     Active Substance: CHONDROITIN SULFATE A\GLUCOSAMINE
     Indication: BACK PAIN
     Dosage: UNK
     Route: 065
  9. ABILIFY [Suspect]
     Active Substance: ARIPIPRAZOLE
     Indication: DEPRESSION
     Dosage: 1 DF, UNK
     Route: 048
  10. OMEPRAZOLE. [Interacting]
     Active Substance: OMEPRAZOLE
     Indication: GASTROOESOPHAGEAL REFLUX DISEASE
     Dosage: 20.6 MG, QD
     Route: 065
  11. LISINOPRIL. [Suspect]
     Active Substance: LISINOPRIL
     Indication: HYPERTENSION
     Dosage: 10 MG, QD
     Route: 065
  12. VITAMIN D [Suspect]
     Active Substance: CHOLECALCIFEROL
     Indication: VITAMIN D DEFICIENCY
     Dosage: 50 KIU, UNK
     Route: 065

REACTIONS (2)
  - Drug interaction [Unknown]
  - Drug administration error [Unknown]

NARRATIVE: CASE EVENT DATE: 20120407
